FAERS Safety Report 5590192-3 (Version None)
Quarter: 2007Q4

REPORT INFORMATION
  Report Type: 
  Country: None (occurrence: None)
  Receive Date: 20071217
  Receipt Date: 20070907
  Transmission Date: 20080405
  Serious: No
  Sender: FDA-Public Use
  Company Number: BDI-010168

PATIENT
  Age: 27 Year
  Sex: Female
  Weight: 82 kg

DRUGS (2)
  1. MULTIHANCE [Suspect]
     Indication: HYPOAESTHESIA FACIAL
     Dosage: 15 ML ONCE IV
     Route: 042
     Dates: start: 20070906, end: 20070906
  2. MULTIHANCE [Suspect]
     Indication: NUCLEAR MAGNETIC RESONANCE IMAGING
     Dosage: 15 ML ONCE IV
     Route: 042
     Dates: start: 20070906, end: 20070906

REACTIONS (2)
  - NAUSEA [None]
  - VOMITING [None]
